FAERS Safety Report 6851115-X (Version None)
Quarter: 2010Q3

REPORT INFORMATION
  Report Type: 
  Country: None (occurrence: None)
  Receive Date: 20100716
  Receipt Date: 20080110
  Transmission Date: 20110219
  Serious: No
  Sender: FDA-Public Use
  Company Number: US-PFIZER INC-2007091135

PATIENT
  Sex: Female
  Weight: 49.9 kg

DRUGS (4)
  1. CHANTIX [Suspect]
     Indication: SMOKING CESSATION THERAPY
     Dates: start: 20071017
  2. ALL OTHER THERAPEUTIC PRODUCTS [Concomitant]
     Indication: OPTIC NEUROPATHY
  3. OPHTHALMOLOGICALS [Concomitant]
     Indication: OPTIC NEUROPATHY
     Route: 047
  4. ALL OTHER THERAPEUTIC PRODUCTS [Concomitant]
     Indication: INFECTION

REACTIONS (5)
  - CHANGE OF BOWEL HABIT [None]
  - CHILLS [None]
  - HOT FLUSH [None]
  - NAUSEA [None]
  - VISION BLURRED [None]
